FAERS Safety Report 9402456 (Version 2)
Quarter: 2013Q3

REPORT INFORMATION
  Report Type: Spontaneous
  Country: AR (occurrence: AR)
  Receive Date: 20130716
  Receipt Date: 20130813
  Transmission Date: 20140515
  Serious: Yes (Hospitalization, Other)
  Sender: FDA-Public Use
  Company Number: AR-TEVA-397486ISR

PATIENT
  Age: 30 Year
  Sex: Female

DRUGS (2)
  1. COPAXONE [Suspect]
     Indication: RELAPSING-REMITTING MULTIPLE SCLEROSIS
     Dosage: 20 MILLIGRAM DAILY;
     Route: 058
     Dates: start: 20100401, end: 20130228
  2. DUVADILAN [Concomitant]
     Dosage: 10 MILLIGRAM DAILY; 1 TABLET IN THE MORNING
     Route: 048
     Dates: start: 20130301

REACTIONS (6)
  - Vaginal haemorrhage [Recovered/Resolved]
  - Uterine hypertonus [Recovered/Resolved]
  - Normal newborn [Unknown]
  - Uterine contractions during pregnancy [Recovered/Resolved]
  - Paraesthesia [Recovered/Resolved]
  - Anxiety [Recovered/Resolved]
